FAERS Safety Report 10736555 (Version 1)
Quarter: 2015Q1

REPORT INFORMATION
  Report Type: Spontaneous
  Country: KR (occurrence: KR)
  Receive Date: 20150126
  Receipt Date: 20150126
  Transmission Date: 20150721
  Serious: Yes (Hospitalization)
  Sender: FDA-Public Use
  Company Number: KR-PFIZER INC-2015026028

PATIENT
  Age: 62 Year
  Sex: Male

DRUGS (5)
  1. LEUCOVORIN [Suspect]
     Active Substance: LEUCOVORIN
     Indication: COLORECTAL CANCER
     Dosage: 200 MG/M2, CYCLIC, (FOR 2 HOURS ADDED ON DAYS 1 AND 2)
  2. FLUOROURACIL. [Interacting]
     Active Substance: FLUOROURACIL
     Dosage: 600 MG/M2, CYCLIC, (FOR 22 HOURS ADDED ON DAYS 1 AND 2)
     Route: 041
  3. OXALIPLATIN. [Concomitant]
     Active Substance: OXALIPLATIN
     Indication: COLORECTAL CANCER
     Dosage: 85 MG/M2, CYCLIC, (FOR 2 HOURS ON DAY 1)
  4. IRINOTECAN HCL [Suspect]
     Active Substance: IRINOTECAN HYDROCHLORIDE
     Indication: COLORECTAL CANCER
     Dosage: 180 MG/M2, CYCLIC, (FOR 2 HOURS ON DAY 1)
  5. FLUOROURACIL. [Interacting]
     Active Substance: FLUOROURACIL
     Indication: COLORECTAL CANCER
     Dosage: 400 MG/M2, CYCLIC, (ON DAYS 1 AND 2)
     Route: 040

REACTIONS (2)
  - Organising pneumonia [Recovered/Resolved]
  - Drug interaction [Recovered/Resolved]
